FAERS Safety Report 4859677-9 (Version None)
Quarter: 2005Q4

REPORT INFORMATION
  Report Type: 
  Country: None (occurrence: None)
  Receive Date: 20051215
  Receipt Date: 20051215
  Transmission Date: 20060501
  Serious: Yes (Other)
  Sender: FDA-Public Use
  Company Number: None

PATIENT
  Sex: Male
  Weight: 90.68 kg

DRUGS (4)
  1. FLUOROURACIL [Suspect]
     Indication: COLORECTAL CANCER
     Dosage: SEE IMAGE
     Dates: start: 20050630
  2. LEUCOVORIN CALCIUM [Suspect]
     Dosage: SEE IMAGE
     Dates: start: 20050628
  3. ELOXATIN [Suspect]
     Dosage: SEE IMAGE
     Dates: start: 20050530
  4. OXYCONTIN [Concomitant]

REACTIONS (2)
  - PYREXIA [None]
  - SYNCOPE [None]
